FAERS Safety Report 19456443 (Version 2)
Quarter: 2021Q4

REPORT INFORMATION
  Report Type: Spontaneous
  Country: CA (occurrence: CA)
  Receive Date: 20210624
  Receipt Date: 20211203
  Transmission Date: 20220303
  Serious: Yes (Hospitalization)
  Sender: FDA-Public Use
  Company Number: CA-TEVA-2021-CA-1924586

PATIENT
  Age: 69 Year
  Sex: Female

DRUGS (3)
  1. OXALIPLATIN [Suspect]
     Active Substance: OXALIPLATIN
     Indication: Colon cancer stage III
     Route: 065
  2. LEUCOVORIN [Suspect]
     Active Substance: LEUCOVORIN
     Indication: Colon cancer stage III
     Route: 065
  3. FLUOROURACIL [Suspect]
     Active Substance: FLUOROURACIL
     Indication: Colon cancer stage III
     Route: 065

REACTIONS (3)
  - Febrile neutropenia [Unknown]
  - Diarrhoea [Unknown]
  - Alopecia [Unknown]
